FAERS Safety Report 6766585-5 (Version None)
Quarter: 2010Q2

REPORT INFORMATION
  Report Type: 
  Country: None (occurrence: None)
  Receive Date: 20100611
  Receipt Date: 20100528
  Transmission Date: 20101027
  Serious: Yes (Other)
  Sender: FDA-Public Use
  Company Number: PHHY2010FI16692

PATIENT
  Sex: Female

DRUGS (1)
  1. ZOMETA [Suspect]
     Indication: NECROSIS
     Dosage: 4 MG, UNK

REACTIONS (2)
  - ARTHROPATHY [None]
  - SYNOVITIS [None]
